FAERS Safety Report 5411357-7 (Version None)
Quarter: 2007Q3

REPORT INFORMATION
  Report Type: 
  Country: None (occurrence: None)
  Receive Date: 20070810
  Receipt Date: 20070808
  Transmission Date: 20080115
  Serious: Yes (Death, Hospitalization)
  Sender: FDA-Public Use
  Company Number: KR-SANOFI-SYNTHELABO-F01200700987

PATIENT
  Sex: Female
  Weight: 51 kg

DRUGS (2)
  1. TS-1 [Suspect]
     Dosage: UNK
     Route: 048
     Dates: start: 20070420
  2. OXALIPLATIN [Suspect]
     Indication: COLON CANCER
     Route: 041
     Dates: start: 20070420, end: 20070420

REACTIONS (1)
  - PANCYTOPENIA [None]
